FAERS Safety Report 5878402-6 (Version None)
Quarter: 2008Q3

REPORT INFORMATION
  Report Type: 
  Country: None (occurrence: None)
  Receive Date: 20080911
  Receipt Date: 20080904
  Transmission Date: 20090109
  Serious: Yes (Disabling)
  Sender: FDA-Public Use
  Company Number: FR-PFIZER INC-2008055482

PATIENT
  Sex: Female
  Weight: 81 kg

DRUGS (2)
  1. XALATAN [Suspect]
     Indication: NORMAL TENSION GLAUCOMA
     Route: 061
     Dates: start: 20071210, end: 20080101
  2. HOMEOPATIC PREPARATION [Concomitant]

REACTIONS (1)
  - OEDEMA PERIPHERAL [None]
